FAERS Safety Report 9101101 (Version 1)
Quarter: 2013Q1

REPORT INFORMATION
  Report Type: Report from Study
  Country: CA (occurrence: CA)
  Receive Date: 20130218
  Receipt Date: 20130218
  Transmission Date: 20140127
  Serious: Yes (Other)
  Sender: FDA-Public Use
  Company Number: CA-ROCHE-1125294

PATIENT
  Age: 60 Year
  Sex: Female
  Weight: 50 kg

DRUGS (6)
  1. ACTEMRA [Suspect]
     Indication: RHEUMATOID ARTHRITIS
     Route: 042
     Dates: start: 20120724, end: 20121120
  2. PRISTIQ [Concomitant]
     Indication: DEPRESSION
  3. SYNTHROID [Concomitant]
  4. HYDROMORPHONE [Concomitant]
     Indication: PAIN
     Route: 065
  5. SYMBICORT [Concomitant]
     Route: 045
  6. CORTISONE [Concomitant]
     Route: 065

REACTIONS (5)
  - Pruritus [Unknown]
  - Rash [Unknown]
  - Urinary tract infection [Not Recovered/Not Resolved]
  - Lower respiratory tract infection [Not Recovered/Not Resolved]
  - Foot fracture [Recovering/Resolving]
